FAERS Safety Report 4306659-1 (Version None)
Quarter: 2004Q1

REPORT INFORMATION
  Report Type: 
  Country: None (occurrence: None)
  Receive Date: 20040225
  Receipt Date: 20031111
  Transmission Date: 20041129
  Serious: No
  Sender: FDA-Public Use
  Company Number: US-BRISTOL-MYERS SQUIBB COMPANY-12437513

PATIENT
  Age: 43 Year
  Sex: Male
  Weight: 86 kg

DRUGS (1)
  1. EXCEDRIN ES TABS [Suspect]
     Indication: HEADACHE
     Dosage: ^2 TABS SEVERAL TIMES A DAY.^
     Route: 048

REACTIONS (1)
  - DRUG INEFFECTIVE [None]
